FAERS Safety Report 9950547 (Version 1)
Quarter: 2014Q1

REPORT INFORMATION
  Report Type: Report from Study
  Country: US (occurrence: US)
  Receive Date: 20140304
  Receipt Date: 20140304
  Transmission Date: 20141002
  Serious: No
  Sender: FDA-Public Use
  Company Number: US-ABBVIE-13P-163-1073550-00

PATIENT
  Age: 57 Year
  Sex: Male

DRUGS (6)
  1. HUMIRA [Suspect]
     Indication: CROHN^S DISEASE
  2. METOPROLOL [Concomitant]
     Indication: ATRIAL FIBRILLATION
  3. POTASSIUM [Concomitant]
     Indication: ATRIAL FIBRILLATION
  4. COUMADIN [Concomitant]
     Indication: ATRIAL FIBRILLATION
  5. ACAFEX [Concomitant]
     Indication: ATRIAL FIBRILLATION
  6. WELCOHL [Concomitant]
     Indication: ATRIAL FIBRILLATION

REACTIONS (1)
  - Influenza [Recovering/Resolving]
